FAERS Safety Report 15447860 (Version 3)
Quarter: 2018Q4

REPORT INFORMATION
  Report Type: Spontaneous
  Country: US (occurrence: US)
  Receive Date: 20180928
  Receipt Date: 20181225
  Transmission Date: 20190204
  Serious: Yes (Hospitalization, Other)
  Sender: FDA-Public Use
  Company Number: US-TEVA-2018-US-958358

PATIENT
  Age: 117 Year
  Sex: Male

DRUGS (2)
  1. ABAGIO [Suspect]
     Active Substance: TERIFLUNOMIDE
     Route: 065
     Dates: end: 20180730
  2. TECFIDERA [Concomitant]
     Active Substance: DIMETHYL FUMARATE

REACTIONS (2)
  - Multiple sclerosis relapse [Not Recovered/Not Resolved]
  - Multiple sclerosis relapse [Unknown]

NARRATIVE: CASE EVENT DATE: 20180708
